FAERS Safety Report 11474709 (Version 1)
Quarter: 2015Q3

REPORT INFORMATION
  Report Type: Spontaneous
  Country: US (occurrence: None)
  Receive Date: 20150908
  Receipt Date: 20150908
  Transmission Date: 20151125
  Serious: Yes (Other)
  Sender: FDA-Public Use
  Company Number: None

PATIENT
  Age: 42 Year
  Sex: Female
  Weight: 107.05 kg

DRUGS (4)
  1. MIRALAX [Concomitant]
     Active Substance: POLYETHYLENE GLYCOL 3350
  2. LUPRON [Suspect]
     Active Substance: LEUPROLIDE ACETATE
     Indication: UTERINE LEIOMYOMA
     Dosage: 1 DOSE EVERY 30 DAYS X 2 DOSES, ONCE EVERY 30 DAYS
     Route: 030
     Dates: start: 20150831
  3. LUPRON [Suspect]
     Active Substance: LEUPROLIDE ACETATE
     Indication: ANAEMIA
     Dosage: 1 DOSE EVERY 30 DAYS X 2 DOSES, ONCE EVERY 30 DAYS
     Route: 030
     Dates: start: 20150831
  4. FERROUS SULFATE [Concomitant]
     Active Substance: FERROUS SULFATE\FERROUS SULFATE, DRIED

REACTIONS (4)
  - Vomiting [None]
  - Nausea [None]
  - Vertigo [None]
  - Impaired work ability [None]

NARRATIVE: CASE EVENT DATE: 20150903
